FAERS Safety Report 10184239 (Version 1)
Quarter: 2014Q2

REPORT INFORMATION
  Report Type: Spontaneous
  Country: FR (occurrence: FR)
  Receive Date: 20140520
  Receipt Date: 20140520
  Transmission Date: 20141212
  Serious: Yes (Hospitalization)
  Sender: FDA-Public Use
  Company Number: FR-DSJP-DSE-2014-108380

PATIENT
  Sex: 0

DRUGS (3)
  1. AXELER 20 MG/ 5 MG [Suspect]
     Indication: HYPERTENSION
     Dosage: UNK
     Route: 048
     Dates: start: 2013, end: 2013
  2. AXELER 20 MG/ 5 MG [Suspect]
     Dosage: 20/5 MG, QD
     Route: 048
     Dates: start: 201401, end: 20140312
  3. COOLMETEC 20 MG / 12,5 MG [Suspect]
     Indication: HYPERTENSION
     Dosage: 20/12.5 MG , QD
     Route: 048
     Dates: start: 201401, end: 20140312

REACTIONS (3)
  - Enteritis [Recovered/Resolved]
  - Diarrhoea [Recovered/Resolved]
  - Weight decreased [Recovered/Resolved]
